FAERS Safety Report 21313105 (Version 1)
Quarter: 2022Q3

REPORT INFORMATION
  Report Type: Spontaneous
  Country: AR (occurrence: AR)
  Receive Date: 20220909
  Receipt Date: 20220909
  Transmission Date: 20221027
  Serious: Yes (Other)
  Sender: FDA-Public Use
  Company Number: AR-PFIZER INC-PV202200059264

PATIENT
  Age: 71 Year
  Sex: Female

DRUGS (2)
  1. IBRANCE [Suspect]
     Active Substance: PALBOCICLIB
     Indication: Breast cancer metastatic
     Dosage: UNK
     Dates: start: 20210308
  2. FULVESTRANT [Concomitant]
     Active Substance: FULVESTRANT
     Dosage: UNK
     Dates: start: 20210303

REACTIONS (13)
  - Granulomatous liver disease [Unknown]
  - Thyroid gland scan abnormal [Unknown]
  - Thyroid mass [Unknown]
  - Computerised tomogram abnormal [Unknown]
  - Internal fixation of fracture [Unknown]
  - Vascular calcification [Unknown]
  - Hiatus hernia [Unknown]
  - Degenerative bone disease [Unknown]
  - Osteopenia [Unknown]
  - Arteriosclerosis [Unknown]
  - Diverticulum intestinal [Unknown]
  - Lymph node calcification [Unknown]
  - Neoplasm progression [Unknown]

NARRATIVE: CASE EVENT DATE: 20210505
